FAERS Safety Report 4516240-7 (Version None)
Quarter: 2004Q4

REPORT INFORMATION
  Report Type: 
  Country: None (occurrence: None)
  Receive Date: 20041202
  Receipt Date: 20041119
  Transmission Date: 20050328
  Serious: Yes (Other)
  Sender: FDA-Public Use
  Company Number: AU-BRISTOL-MYERS SQUIBB COMPANY-12771598

PATIENT

DRUGS (1)
  1. PRAVACHOL [Suspect]

REACTIONS (1)
  - DEMENTIA ALZHEIMER'S TYPE [None]
